FAERS Safety Report 11894608 (Version 2)
Quarter: 2016Q1

REPORT INFORMATION
  Report Type: Spontaneous
  Country: US (occurrence: US)
  Receive Date: 20160107
  Receipt Date: 20160208
  Transmission Date: 20160526
  Serious: Yes (Life-Threatening, Hospitalization)
  Sender: FDA-Public Use
  Company Number: US-ACTAVIS-2015-28969

PATIENT
  Age: 18 Year
  Sex: Female

DRUGS (1)
  1. IBUPROFEN (AMALLC) [Suspect]
     Active Substance: IBUPROFEN
     Dosage: UP TO 600 PILLS OF 200 MG, ROUGHLY 120 G
     Route: 048

REACTIONS (6)
  - Depressed level of consciousness [Recovering/Resolving]
  - Acute kidney injury [Recovering/Resolving]
  - Acidosis [Recovering/Resolving]
  - Intentional overdose [Unknown]
  - Gastrointestinal haemorrhage [Recovering/Resolving]
  - Hypotension [Recovering/Resolving]
